FAERS Safety Report 7569718-6 (Version None)
Quarter: 2011Q2

REPORT INFORMATION
  Report Type: 
  Country: None (occurrence: None)
  Receive Date: 20110624
  Receipt Date: 20110623
  Transmission Date: 20111010
  Serious: No
  Sender: FDA-Public Use
  Company Number: US-PFIZER INC-2011140057

PATIENT
  Sex: Female

DRUGS (2)
  1. CHANTIX [Suspect]
     Dosage: DAILY
     Route: 048
     Dates: start: 20110621, end: 20110622
  2. ZYBAN [Suspect]
     Dosage: UNK
     Route: 048

REACTIONS (1)
  - URTICARIA [None]
